FAERS Safety Report 7604932-2 (Version None)
Quarter: 2011Q3

REPORT INFORMATION
  Report Type: 
  Country: None (occurrence: None)
  Receive Date: 20110713
  Receipt Date: 20110701
  Transmission Date: 20111222
  Serious: Yes (Hospitalization)
  Sender: FDA-Public Use
  Company Number: US-BIOGENIDEC-2010BI010086

PATIENT
  Age: 52 Year
  Sex: Female

DRUGS (15)
  1. CYMBALTA [Concomitant]
  2. ZESTORETIC [Concomitant]
  3. TYSABRI [Suspect]
     Indication: MULTIPLE SCLEROSIS
     Route: 042
     Dates: start: 20061012
  4. VICODIN [Concomitant]
  5. REQUIP [Concomitant]
  6. ZOFRAN [Concomitant]
  7. COUMADIN [Concomitant]
  8. NEURONTIN [Concomitant]
  9. BACLOFEN [Concomitant]
  10. METHADONE HCL [Concomitant]
  11. COLACE [Concomitant]
  12. VOLTAREN [Concomitant]
  13. OMEPRAZOLE [Concomitant]
  14. TIZANIDINE HCL [Concomitant]
  15. NEXIUM [Concomitant]

REACTIONS (8)
  - WOUND INFECTION STAPHYLOCOCCAL [None]
  - OTOTOXICITY [None]
  - EMBOLISM [None]
  - HYPOTENSION [None]
  - RENAL FAILURE [None]
  - SEPTIC ARTHRITIS STREPTOCOCCAL [None]
  - ANAEMIA [None]
  - INFECTED SKIN ULCER [None]
